FAERS Safety Report 13245874 (Version 1)
Quarter: 2017Q1

REPORT INFORMATION
  Report Type: Spontaneous
  Country: PL (occurrence: PL)
  Receive Date: 20170217
  Receipt Date: 20170217
  Transmission Date: 20170428
  Serious: No
  Sender: FDA-Public Use
  Company Number: PL-PERNIX THERAPEUTICS-2016PT000256

PATIENT
  Age: 7 Year

DRUGS (1)
  1. CEDAX [Suspect]
     Active Substance: CEFTIBUTEN DIHYDRATE
     Indication: ATYPICAL PNEUMONIA
     Dosage: UNK
     Route: 048
     Dates: start: 201611

REACTIONS (2)
  - Drug ineffective for unapproved indication [None]
  - Off label use [Unknown]

NARRATIVE: CASE EVENT DATE: 201611
